FAERS Safety Report 7070135-6 (Version None)
Quarter: 2010Q4

REPORT INFORMATION
  Report Type: 
  Country: None (occurrence: None)
  Receive Date: 20101028
  Receipt Date: 20100910
  Transmission Date: 20110411
  Serious: No
  Sender: FDA-Public Use
  Company Number: US-WYE-H17497210

PATIENT
  Sex: Male
  Weight: 126.21 kg

DRUGS (5)
  1. PROTONIX [Suspect]
     Indication: ALCOHOL ABUSE
     Dates: start: 20080807, end: 20090807
  2. PROTONIX [Suspect]
     Indication: ANXIETY
  3. CELEBREX [Concomitant]
  4. LEXAPRO [Concomitant]
  5. BYSTOLIC [Concomitant]

REACTIONS (1)
  - DRUG SCREEN POSITIVE [None]
